FAERS Safety Report 22242304 (Version 2)
Quarter: 2023Q2

REPORT INFORMATION
  Report Type: Spontaneous
  Country: US (occurrence: US)
  Receive Date: 20230422
  Receipt Date: 20230427
  Transmission Date: 20230721
  Serious: No
  Sender: FDA-Public Use
  Company Number: US-AMGEN-USASP2023067771

PATIENT
  Sex: Female

DRUGS (7)
  1. PROLIA [Suspect]
     Active Substance: DENOSUMAB
     Indication: Product used for unknown indication
     Route: 065
  2. IBRANCE [Suspect]
     Active Substance: PALBOCICLIB
     Indication: Breast cancer
     Dosage: 3 WEEKS ON, ONE WEEK OFF
     Route: 065
     Dates: start: 20151019
  3. AMLODIPINE [Concomitant]
     Active Substance: AMLODIPINE BESYLATE
  4. PLAVIX [Concomitant]
     Active Substance: CLOPIDOGREL BISULFATE
  5. TYLENOL [Concomitant]
     Active Substance: ACETAMINOPHEN
  6. FASLODEX [Concomitant]
     Active Substance: FULVESTRANT
  7. EXEMESTANE [Concomitant]
     Active Substance: EXEMESTANE

REACTIONS (6)
  - Dental caries [Unknown]
  - Malaise [Unknown]
  - Arthralgia [Unknown]
  - Bone pain [Unknown]
  - Groin pain [Unknown]
  - Gait disturbance [Unknown]
